FAERS Safety Report 8171399-8 (Version None)
Quarter: 2012Q1

REPORT INFORMATION
  Report Type: 
  Country: None (occurrence: None)
  Receive Date: 20120228
  Receipt Date: 20120224
  Transmission Date: 20120608
  Serious: Yes (Hospitalization)
  Sender: FDA-Public Use
  Company Number: US-GLAXOSMITHKLINE-A0967297A

PATIENT
  Age: 40 Year
  Sex: Female

DRUGS (1)
  1. ALLI [Suspect]
     Indication: WEIGHT LOSS DIET
     Route: 048
     Dates: start: 20120101, end: 20120210

REACTIONS (7)
  - GASTROINTESTINAL PAIN [None]
  - ABDOMINAL PAIN [None]
  - EATING DISORDER [None]
  - APHAGIA [None]
  - LARGE INTESTINE PERFORATION [None]
  - DIVERTICULITIS [None]
  - GASTROINTESTINAL INFECTION [None]
